FAERS Safety Report 17922848 (Version 2)
Quarter: 2021Q2

REPORT INFORMATION
  Report Type: Spontaneous
  Country: CA (occurrence: CA)
  Receive Date: 20200622
  Receipt Date: 20210628
  Transmission Date: 20210717
  Serious: Yes (Life-Threatening, Other)
  Sender: FDA-Public Use
  Company Number: CA-TEVA-2020-CA-1791151

PATIENT
  Age: 22 Year
  Sex: Female
  Weight: 72 kg

DRUGS (21)
  1. DULOXETINE. [Concomitant]
     Active Substance: DULOXETINE
  2. TRIMETHOPRIMSULFAMETHOXAZOLE [Suspect]
     Active Substance: SULFAMETHOXAZOLE\TRIMETHOPRIM
     Dosage: 2 DOSAGE FORMS DAILY;
     Route: 048
  3. HALOPERIDOL INJ 5MG/ML USP [Suspect]
     Active Substance: HALOPERIDOL DECANOATE
     Indication: TACHYCARDIA
     Route: 030
  4. HALOPERIDOL INJ 5MG/ML USP [Suspect]
     Active Substance: HALOPERIDOL DECANOATE
     Indication: HYPERVENTILATION
  5. HALOPERIDOL INJ 5MG/ML USP [Suspect]
     Active Substance: HALOPERIDOL DECANOATE
     Indication: ANXIETY
  6. VITAMIN C [Concomitant]
     Active Substance: ASCORBIC ACID
  7. DEXAMETHASONE. [Concomitant]
     Active Substance: DEXAMETHASONE
  8. FRAGMIN [Concomitant]
     Active Substance: DALTEPARIN SODIUM
  9. NORTRIPTYLINE [Concomitant]
     Active Substance: NORTRIPTYLINE
  10. SENNOSIDES. [Concomitant]
     Active Substance: SENNOSIDES
  11. PANTOPRAZOLE [Concomitant]
     Active Substance: PANTOPRAZOLE
  12. CYCLOBENZAPRINE. [Concomitant]
     Active Substance: CYCLOBENZAPRINE
  13. ACETAMINOPHEN. [Concomitant]
     Active Substance: ACETAMINOPHEN
  14. HYDROCORTISONE ACETATE CREAM USP [Concomitant]
     Active Substance: HYDROCORTISONE ACETATE
  15. LACTULOSE SYRUP [Concomitant]
     Active Substance: LACTULOSE
  16. BACLOFEN. [Concomitant]
     Active Substance: BACLOFEN
  17. BISACODYL. [Concomitant]
     Active Substance: BISACODYL
  18. HYDROMORPHONE [Concomitant]
     Active Substance: HYDROMORPHONE
  19. HYDROMORPHONE HCL INJ USP [Concomitant]
     Active Substance: HYDROMORPHONE HYDROCHLORIDE
  20. HYDROMORPHONE SR [Concomitant]
     Active Substance: HYDROMORPHONE HYDROCHLORIDE
  21. PREGABALIN. [Concomitant]
     Active Substance: PREGABALIN

REACTIONS (9)
  - Eye oedema [Recovered/Resolved]
  - Heart rate increased [Recovered/Resolved]
  - Lip oedema [Recovered/Resolved]
  - Anaphylactic reaction [Recovered/Resolved]
  - Face oedema [Recovered/Resolved]
  - Speech disorder [Recovered/Resolved]
  - Dyspnoea [Recovered/Resolved]
  - Localised oedema [Recovered/Resolved]
  - Tremor [Recovered/Resolved]
